FAERS Safety Report 23116257 (Version 6)
Quarter: 2025Q1

REPORT INFORMATION
  Report Type: Spontaneous
  Country: US (occurrence: US)
  Receive Date: 20231027
  Receipt Date: 20250304
  Transmission Date: 20250409
  Serious: Yes (Hospitalization, Other)
  Sender: PFIZER
  Company Number: US-PFIZER INC-PV202300139643

PATIENT
  Age: 80 Year
  Sex: Female
  Weight: 68.027 kg

DRUGS (4)
  1. BOSULIF [Suspect]
     Active Substance: BOSUTINIB MONOHYDRATE
     Indication: Chronic myeloid leukaemia
     Dosage: 400 MG, QD (ONCE A DAY)
     Route: 048
     Dates: start: 20211018, end: 20220919
  2. BOSULIF [Suspect]
     Active Substance: BOSUTINIB MONOHYDRATE
     Dosage: D1-28 Q28 DAY
     Route: 048
  3. BOSULIF [Suspect]
     Active Substance: BOSUTINIB MONOHYDRATE
     Dosage: 400 MG, 1X/DAY
     Route: 048
  4. BOSULIF [Suspect]
     Active Substance: BOSUTINIB MONOHYDRATE
     Dosage: 400 MG (OF 100 MG) TABLET ORAL DAILY FOR 30 DAYS
     Route: 048
     Dates: start: 20250213

REACTIONS (4)
  - Cardiac failure congestive [Unknown]
  - Pulmonary hypertension [Unknown]
  - Pneumonia [Unknown]
  - Product dispensing error [Unknown]
